FAERS Safety Report 21685854 (Version 1)
Quarter: 2022Q4

REPORT INFORMATION
  Report Type: Spontaneous
  Country: NL (occurrence: NL)
  Receive Date: 20221206
  Receipt Date: 20221206
  Transmission Date: 20230112
  Serious: Yes (Other)
  Sender: FDA-Public Use
  Company Number: NL-LRB-00851519

PATIENT
  Sex: Female
  Weight: 54 kg

DRUGS (1)
  1. DICLOFENAC SODIUM [Suspect]
     Active Substance: DICLOFENAC SODIUM
     Indication: Tenosynovitis stenosans
     Dosage: 50 MILLIGRAM, 3 TIMES A DAY (3X PER DAG 1 STUK)
     Route: 065
     Dates: start: 20221109, end: 20221111

REACTIONS (1)
  - Meniere^s disease [Recovering/Resolving]
